FAERS Safety Report 7643063-2 (Version None)
Quarter: 2011Q3

REPORT INFORMATION
  Report Type: 
  Country: None (occurrence: None)
  Receive Date: 20110728
  Receipt Date: 20110722
  Transmission Date: 20111222
  Serious: Yes (Hospitalization, Other)
  Sender: FDA-Public Use
  Company Number: FR-PFIZER INC-2011147304

PATIENT
  Age: 80 Year
  Sex: Female

DRUGS (22)
  1. MEMANTINE HYDROCHLORIDE [Suspect]
     Dosage: 0.5 DF, 2X/DAY
     Route: 048
     Dates: start: 20110514, end: 20110523
  2. MORPHINE [Concomitant]
     Dosage: 3 MG, UNK
     Route: 058
     Dates: start: 20110514, end: 20110515
  3. FOLIC ACID [Concomitant]
     Dosage: UNK
  4. FLAGYL [Suspect]
     Dosage: 500 MG, 3X/DAY
     Route: 048
     Dates: start: 20110516, end: 20110529
  5. NEXIUM [Concomitant]
     Dosage: 20 MG, 1X/DAY
     Dates: end: 20110101
  6. PRIMPERAN TAB [Concomitant]
     Dosage: UNK
  7. LYRICA [Suspect]
     Dosage: 75 MG, 2X/DAY
     Route: 048
     Dates: start: 20110516
  8. FLAGYL [Suspect]
     Dosage: 500 MG, UNK
     Route: 042
     Dates: start: 20110511, end: 20110515
  9. MEMANTINE HYDROCHLORIDE [Suspect]
     Dosage: 5 MG, 2X/DAY
     Dates: start: 20110524
  10. NICARDIPINE HCL [Concomitant]
     Dosage: 50 MG, 2X/DAY
     Dates: start: 20110512
  11. MORPHINE [Concomitant]
     Dosage: 5 MG, UNK
     Route: 058
     Dates: start: 20110516
  12. ENALAPRIL MALEATE [Concomitant]
     Dosage: 5 MG, 1X/DAY
     Dates: start: 20110524
  13. FORLAX [Concomitant]
     Dosage: 4000 UNK, UNK
     Dates: start: 20110520
  14. PARACETAMOL [Concomitant]
     Dosage: 1 G, UNK
     Route: 042
  15. ASPIRIN [Concomitant]
     Dosage: UNK
  16. FERROUS SULFATE TAB [Concomitant]
     Dosage: UNK
  17. OXYCONTIN [Concomitant]
     Dosage: 5 MG, 2X/DAY
     Dates: start: 20110520
  18. ACUPAN [Concomitant]
     Dosage: 0.5 DF, 3X/DAY
     Route: 042
     Dates: end: 20110512
  19. CACIT D3 [Concomitant]
     Dosage: UNK
  20. TRAMADOL HCL [Concomitant]
     Dosage: 1 DF, 2X/DAY
     Dates: end: 20110101
  21. LOVENOX [Concomitant]
     Dosage: UNK
  22. POTASSIUM CHLORIDE [Concomitant]
     Dosage: UNK
     Dates: end: 20110101

REACTIONS (6)
  - COGNITIVE DISORDER [None]
  - SUPERINFECTION [None]
  - NORMOCHROMIC NORMOCYTIC ANAEMIA [None]
  - DIABETIC COMPLICATION [None]
  - CHOLESTASIS [None]
  - IMPAIRED HEALING [None]
